FAERS Safety Report 7612046-0 (Version None)
Quarter: 2011Q3

REPORT INFORMATION
  Report Type: 
  Country: None (occurrence: None)
  Receive Date: 20110715
  Receipt Date: 20110704
  Transmission Date: 20111222
  Serious: Yes (Death)
  Sender: FDA-Public Use
  Company Number: GB-UCBSA-036618

PATIENT

DRUGS (1)
  1. CIMZIA [Suspect]
     Route: 058
     Dates: start: 20110610, end: 20110101

REACTIONS (1)
  - DEATH [None]
